FAERS Safety Report 7499983-5 (Version None)
Quarter: 2011Q2

REPORT INFORMATION
  Report Type: 
  Country: None (occurrence: None)
  Receive Date: 20110524
  Receipt Date: 20110513
  Transmission Date: 20111010
  Serious: Yes (Hospitalization)
  Sender: FDA-Public Use
  Company Number: CA-SANOFI-AVENTIS-2011SA031203

PATIENT
  Sex: Male
  Weight: 95.2 kg

DRUGS (22)
  1. METHOTREXATE [Concomitant]
  2. MELOXICAM [Concomitant]
  3. ZYTRAM [Concomitant]
  4. CLORAZEPATE DIPOTASSIUM [Concomitant]
  5. PLAQUENIL [Suspect]
     Route: 048
     Dates: start: 20100501, end: 20100701
  6. TRAMADOL HCL [Concomitant]
  7. OXAZEPAM [Concomitant]
  8. BLINDED THERAPY [Suspect]
     Indication: RHEUMATOID ARTHRITIS
     Route: 048
     Dates: end: 20070601
  9. MORPHINE SULFATE [Concomitant]
  10. LIPITOR [Concomitant]
  11. BLINDED THERAPY [Suspect]
     Indication: OSTEOARTHRITIS
     Route: 048
     Dates: end: 20070601
  12. GRAVOL TAB [Concomitant]
  13. NARDIL /CAN/ [Concomitant]
  14. HYDROCHLOROTHIAZIDE [Concomitant]
  15. TRAZODONE HCL [Concomitant]
  16. KENALOG [Concomitant]
  17. MOCLOBEMIDE [Concomitant]
  18. ACETAMINOPHEN [Concomitant]
  19. RABEPRAZOLE SODIUM [Concomitant]
  20. NAPROXEN [Concomitant]
  21. TIAZAC [Concomitant]
  22. OSTENIL [Concomitant]

REACTIONS (1)
  - PANCREATITIS [None]
